FAERS Safety Report 8682714 (Version 3)
Quarter: 2012Q4

REPORT INFORMATION
  Report Type: 
  Country: US (occurrence: US)
  Receive Date: 20120725
  Receipt Date: 20121127
  Transmission Date: 20130627
  Serious: Yes (Other)
  Sender: FDA-Public Use
  Company Number: US-ASTRAZENECA-2011SE54454

PATIENT
  Age: 29 Year
  Sex: Male
  Weight: 96.2 kg

DRUGS (10)
  1. SEROQUEL [Suspect]
     Indication: SLEEP DISORDER
     Route: 048
  2. SEROQUEL [Suspect]
     Indication: SCHIZOPHRENIA, PARANOID TYPE
     Route: 048
  3. SEROQUEL [Suspect]
     Indication: SLEEP DISORDER
     Route: 048
  4. SEROQUEL [Suspect]
     Indication: SCHIZOPHRENIA, PARANOID TYPE
     Route: 048
  5. SEROQUEL [Suspect]
     Indication: SLEEP DISORDER
     Dosage: GENERIC
     Route: 048
  6. SEROQUEL [Suspect]
     Indication: SCHIZOPHRENIA, PARANOID TYPE
     Dosage: GENERIC
     Route: 048
  7. ADDERALL [Suspect]
     Route: 065
  8. AMBIEN [Concomitant]
  9. KLONOPIN [Concomitant]
  10. NEURONTIN [Concomitant]

REACTIONS (17)
  - Activities of daily living impaired [Unknown]
  - Drug screen positive [Unknown]
  - Hypoaesthesia [Unknown]
  - Insomnia [Unknown]
  - Malaise [Unknown]
  - Mental disorder [Unknown]
  - Schizophrenia, paranoid type [Unknown]
  - Attention deficit/hyperactivity disorder [Unknown]
  - Bipolar disorder [Unknown]
  - Hallucination, visual [Unknown]
  - Product substitution issue [Unknown]
  - Balance disorder [Unknown]
  - Adverse event [Unknown]
  - Drug withdrawal syndrome [Unknown]
  - Drug dependence [Unknown]
  - Drug dose omission [Unknown]
  - Drug ineffective [Unknown]
